FAERS Safety Report 7663164 (Version 3)
Quarter: 2012Q4

REPORT INFORMATION
  Report Type: 
  Country: JP (occurrence: JP)
  Receive Date: 20101110
  Receipt Date: 20120904
  Transmission Date: 20130627
  Serious: Yes (Death)
  Sender: FDA-Public Use
  Company Number: JP-ACTELION-A-CH2010-41082

PATIENT
  Age: 78 Year
  Sex: Female

DRUGS (2)
  1. TRACLEER [Suspect]
     Indication: PULMONARY ARTERIAL HYPERTENSION
     Dosage: UNK , UNK
     Route: 048
  2. SILDENAFIL [Concomitant]

REACTIONS (4)
  - Gastrointestinal necrosis [Fatal]
  - Cardiac arrest [Fatal]
  - Bradycardia [Fatal]
  - Metabolic acidosis [Unknown]
